FAERS Safety Report 9107001 (Version 3)
Quarter: 2013Q4

REPORT INFORMATION
  Report Type: Spontaneous
  Country: US (occurrence: US)
  Receive Date: 20130221
  Receipt Date: 20131213
  Transmission Date: 20140711
  Serious: Yes (Death, Hospitalization, Other)
  Sender: FDA-Public Use
  Company Number: US-009507513-1302USA009136

PATIENT
  Sex: Female

DRUGS (4)
  1. FOSAMAX [Suspect]
     Indication: OSTEOPOROSIS
     Dosage: 70 MG, QW
     Route: 048
     Dates: start: 200401, end: 200504
  2. FOSAMAX PLUS D [Suspect]
     Indication: OSTEOPOROSIS
     Dosage: 70 MG, QW
     Route: 048
     Dates: start: 200504, end: 200701
  3. SKELID [Concomitant]
     Indication: OSTEOPOROSIS
     Dosage: UNK
     Dates: start: 1987, end: 2004
  4. OSTEOLITE [Concomitant]
     Indication: OSTEOPOROSIS
     Dosage: UNK
     Dates: start: 1987, end: 2004

REACTIONS (4)
  - Femur fracture [Unknown]
  - Death [Fatal]
  - Surgery [Unknown]
  - Depression [Unknown]
